FAERS Safety Report 6163216-2 (Version None)
Quarter: 2009Q2

REPORT INFORMATION
  Report Type: 
  Country: None (occurrence: None)
  Receive Date: 20090420
  Receipt Date: 20090420
  Transmission Date: 20091009
  Serious: Yes (Life-Threatening)
  Sender: FDA-Public Use
  Company Number: None

PATIENT
  Age: 82 Year
  Sex: Male
  Weight: 76.7 kg

DRUGS (2)
  1. SULAMETHIZOLE/TRIMETHOPRIM [Suspect]
     Indication: BRONCHITIS
     Dosage: 1 TAB BID PO
     Route: 048
     Dates: start: 20090202, end: 20090207
  2. SULAMETHIZOLE/TRIMETHOPRIM [Suspect]
     Indication: CHRONIC OBSTRUCTIVE PULMONARY DISEASE
     Dosage: 1 TAB BID PO
     Route: 048
     Dates: start: 20090202, end: 20090207

REACTIONS (1)
  - ANGIOEDEMA [None]
